FAERS Safety Report 8617612-1 (Version None)
Quarter: 2012Q3

REPORT INFORMATION
  Report Type: 
  Country: None (occurrence: None)
  Receive Date: 20120824
  Receipt Date: 20111201
  Transmission Date: 20120928
  Serious: No
  Sender: FDA-Public Use
  Company Number: US-ASTRAZENECA-2011SE73243

PATIENT

DRUGS (3)
  1. SYMBICORT [Suspect]
     Dosage: 160/4.5 MICROGRAM, DAILY
     Route: 055
  2. SYMBICORT [Suspect]
     Indication: CHRONIC OBSTRUCTIVE PULMONARY DISEASE
     Dosage: 80/4.5 MICROGRAM, UNKNOWN
     Route: 055
  3. SYMBICORT [Suspect]
     Dosage: 80/4.5 MICROGRAM, UNKNOWN
     Route: 055

REACTIONS (2)
  - DYSPNOEA [None]
  - DRUG INEFFECTIVE [None]
